FAERS Safety Report 7778399-8 (Version None)
Quarter: 2011Q3

REPORT INFORMATION
  Report Type: 
  Country: None (occurrence: None)
  Receive Date: 20110926
  Receipt Date: 20110224
  Transmission Date: 20111222
  Serious: Yes (Hospitalization)
  Sender: FDA-Public Use
  Company Number: US-GLAXOSMITHKLINE-A0915607A

PATIENT
  Age: 42 Year
  Sex: Male

DRUGS (2)
  1. AVANDIA [Suspect]
     Indication: DIABETES MELLITUS
     Route: 048
     Dates: start: 20010101, end: 20060701
  2. AVANDARYL [Suspect]
     Indication: DIABETES MELLITUS
     Route: 048
     Dates: start: 20061101, end: 20080901

REACTIONS (8)
  - VISUAL ACUITY REDUCED [None]
  - HYPERTENSION [None]
  - OPTIC ISCHAEMIC NEUROPATHY [None]
  - PAIN [None]
  - CORONARY ARTERY DISEASE [None]
  - MYOCARDIAL INFARCTION [None]
  - OPTIC ATROPHY [None]
  - CHRONIC OBSTRUCTIVE PULMONARY DISEASE [None]
